FAERS Safety Report 14197027 (Version 4)
Quarter: 2019Q1

REPORT INFORMATION
  Report Type: Report from Study
  Country: IT (occurrence: IT)
  Receive Date: 20171116
  Receipt Date: 20190129
  Transmission Date: 20190417
  Serious: Yes (Other)
  Sender: FDA-Public Use
  Company Number: IT-MYLANLABS-2017M1072078

PATIENT
  Sex: Female

DRUGS (1)
  1. LEVOFLOXACIN. [Suspect]
     Active Substance: LEVOFLOXACIN
     Indication: PNEUMONIA
     Dosage: 1 DOSAGE FORM, QD
     Route: 048
     Dates: start: 20170701, end: 20170705

REACTIONS (3)
  - Ecchymosis [Unknown]
  - Swelling [Unknown]
  - Tendon injury [Unknown]

NARRATIVE: CASE EVENT DATE: 20170714
